FAERS Safety Report 25948062 (Version 1)
Quarter: 2025Q4

REPORT INFORMATION
  Report Type: Spontaneous
  Country: JP (occurrence: JP)
  Receive Date: 20251022
  Receipt Date: 20251022
  Transmission Date: 20260118
  Serious: Yes (Death, Other)
  Sender: MERCK SHARP & DOHME LLC
  Company Number: JP-009507513-2341702

PATIENT
  Age: 84 Year
  Sex: Female

DRUGS (4)
  1. KEYTRUDA [Suspect]
     Active Substance: PEMBROLIZUMAB
     Indication: Triple negative breast cancer
     Dosage: 10 COURSES
     Route: 041
     Dates: start: 2021
  2. PACLITAXEL [Suspect]
     Active Substance: PACLITAXEL
     Indication: PD-L1 positive cancer
     Route: 041
     Dates: start: 2021
  3. GEMCITABINE HYDROCHLORIDE [Suspect]
     Active Substance: GEMCITABINE HYDROCHLORIDE
     Indication: PD-L1 positive cancer
     Route: 065
  4. CARBOPLATIN [Suspect]
     Active Substance: CARBOPLATIN
     Indication: PD-L1 positive cancer
     Route: 065

REACTIONS (6)
  - Death [Fatal]
  - Hepatic function abnormal [Recovered/Resolved]
  - Respiratory disorder [Recovered/Resolved]
  - Malaise [Recovered/Resolved]
  - Immune-mediated hypothyroidism [Unknown]
  - Malignant neoplasm progression [Unknown]
